FAERS Safety Report 5873152-4 (Version None)
Quarter: 2008Q3

REPORT INFORMATION
  Report Type: 
  Country: None (occurrence: None)
  Receive Date: 20080908
  Receipt Date: 20080828
  Transmission Date: 20090109
  Serious: Yes (Other)
  Sender: FDA-Public Use
  Company Number: JP-JNJFOC-20080707449

PATIENT
  Sex: Female

DRUGS (18)
  1. TOPINA [Suspect]
     Route: 048
  2. TOPINA [Suspect]
     Route: 048
  3. TOPINA [Suspect]
     Route: 048
  4. TOPINA [Suspect]
     Route: 048
  5. TOPINA [Suspect]
     Route: 048
  6. TOPINA [Suspect]
     Route: 048
  7. TOPINA [Suspect]
     Route: 048
  8. TOPINA [Suspect]
     Route: 048
  9. TOPINA [Suspect]
     Route: 048
  10. TOPINA [Suspect]
     Indication: MYOCLONIC EPILEPSY
     Route: 048
  11. DEPAKENE [Interacting]
     Indication: MYOCLONIC EPILEPSY
     Route: 048
  12. PHENOBARBITAL TAB [Concomitant]
     Route: 048
  13. PHENOBARBITAL TAB [Concomitant]
     Route: 048
  14. PHENOBARBITAL TAB [Concomitant]
     Route: 048
  15. PHENOBARBITAL TAB [Concomitant]
     Indication: DRUG USE FOR UNKNOWN INDICATION
     Route: 048
  16. SEDIEL [Concomitant]
     Route: 048
  17. SEDIEL [Concomitant]
     Indication: DRUG USE FOR UNKNOWN INDICATION
     Route: 048
  18. TRAZODONE HCL [Concomitant]
     Indication: DRUG USE FOR UNKNOWN INDICATION
     Route: 048

REACTIONS (5)
  - CONVULSION [None]
  - DEPRESSION [None]
  - DRUG INTERACTION [None]
  - INCONTINENCE [None]
  - WEIGHT DECREASED [None]
